FAERS Safety Report 9625687 (Version 1)
Quarter: 2013Q4

REPORT INFORMATION
  Report Type: Report from Study
  Country: US (occurrence: US)
  Receive Date: 20131016
  Receipt Date: 20131016
  Transmission Date: 20140711
  Serious: Yes (Life-Threatening, Hospitalization)
  Sender: FDA-Public Use
  Company Number: US-JNJFOC-20131006979

PATIENT
  Age: 18 Year
  Sex: Female

DRUGS (2)
  1. NUCYNTA ER [Suspect]
     Indication: PRODUCT USED FOR UNKNOWN INDICATION
     Route: 065
  2. ACETAMINOPHEN [Suspect]
     Indication: PRODUCT USED FOR UNKNOWN INDICATION
     Route: 065

REACTIONS (13)
  - Intentional overdose [Recovering/Resolving]
  - Hypertension [Recovering/Resolving]
  - Suicide attempt [Recovered/Resolved]
  - Serotonin syndrome [Recovering/Resolving]
  - Depressed level of consciousness [Recovering/Resolving]
  - Respiratory depression [Recovering/Resolving]
  - Lethargy [Recovering/Resolving]
  - Miosis [Recovering/Resolving]
  - Nystagmus [Recovering/Resolving]
  - Tachycardia [Recovering/Resolving]
  - Gastrointestinal disorder [Recovering/Resolving]
  - Renal disorder [Recovering/Resolving]
  - Toxicity to various agents [Unknown]
